FAERS Safety Report 25334320 (Version 3)
Quarter: 2025Q3

REPORT INFORMATION
  Report Type: Report from Study
  Country: US (occurrence: US)
  Receive Date: 20250520
  Receipt Date: 20250729
  Transmission Date: 20251020
  Serious: Yes (Other)
  Sender: AMGEN
  Company Number: US-AMGEN-USASL2025094588

PATIENT
  Age: 75 Year
  Sex: Female

DRUGS (2)
  1. TEPEZZA [Suspect]
     Active Substance: TEPROTUMUMAB-TRBW
     Indication: Eye disorder
     Dosage: UNK, Q3WK, (FIRST INFUSION)
     Route: 040
     Dates: start: 20250228
  2. TEPEZZA [Suspect]
     Active Substance: TEPROTUMUMAB-TRBW
     Dosage: UNK UNK, Q3WK, (FOURTH INFUSION)
     Route: 040
     Dates: start: 2025, end: 20250625

REACTIONS (10)
  - Deafness unilateral [Unknown]
  - Product use in unapproved indication [Unknown]
  - Epistaxis [Unknown]
  - Photosensitivity reaction [Unknown]
  - Unevaluable event [Unknown]
  - Cardiac disorder [Unknown]
  - Dry skin [Unknown]
  - Muscle spasms [Unknown]
  - Dysgeusia [Unknown]
  - Tinnitus [Unknown]

NARRATIVE: CASE EVENT DATE: 20250228
